FAERS Safety Report 6729362-7 (Version None)
Quarter: 2010Q2

REPORT INFORMATION
  Report Type: 
  Country: None (occurrence: None)
  Receive Date: 20100517
  Receipt Date: 20100514
  Transmission Date: 20101027
  Serious: No
  Sender: FDA-Public Use
  Company Number: US-ABBOTT-10P-163-0644727-00

PATIENT
  Sex: Female

DRUGS (2)
  1. SIMCOR [Suspect]
     Indication: HYPERLIPIDAEMIA
     Dosage: 500/20 MG
     Dates: start: 20100413
  2. SIMCOR [Suspect]

REACTIONS (3)
  - DIARRHOEA [None]
  - DRUG DOSE OMISSION [None]
  - FLUSHING [None]
